FAERS Safety Report 8528829-9 (Version None)
Quarter: 2012Q3

REPORT INFORMATION
  Report Type: 
  Country: None (occurrence: None)
  Receive Date: 20120723
  Receipt Date: 20120718
  Transmission Date: 20120928
  Serious: Yes (Death)
  Sender: FDA-Public Use
  Company Number: US-PFIZER INC-2012174619

PATIENT
  Sex: Male

DRUGS (1)
  1. SUTENT [Suspect]
     Indication: HEAD AND NECK CANCER
     Dosage: 50 MG, UNK

REACTIONS (2)
  - DISEASE PROGRESSION [None]
  - HEAD AND NECK CANCER [None]
